FAERS Safety Report 25231330 (Version 3)
Quarter: 2025Q2

REPORT INFORMATION
  Report Type: Spontaneous
  Country: US (occurrence: US)
  Receive Date: 20250423
  Receipt Date: 20250620
  Transmission Date: 20250717
  Serious: No
  Sender: BIOVITRUM
  Company Number: US-BIOVITRUM-2025-US-005651

PATIENT
  Sex: Female

DRUGS (1)
  1. KINERET [Suspect]
     Active Substance: ANAKINRA
     Indication: Rheumatoid arthritis
     Dates: start: 20250216

REACTIONS (5)
  - Arthralgia [Unknown]
  - Injection site urticaria [Unknown]
  - Injection site bruising [Unknown]
  - Injection site pain [Unknown]
  - Syringe issue [Unknown]
